FAERS Safety Report 25340624 (Version 1)
Quarter: 2025Q2

REPORT INFORMATION
  Report Type: Spontaneous
  Country: US (occurrence: US)
  Receive Date: 20250521
  Receipt Date: 20250521
  Transmission Date: 20250716
  Serious: No
  Sender: NOVITIUM PHARMA
  Company Number: US-NOVITIUMPHARMA-2025USNVP01161

PATIENT
  Age: 37 Year
  Sex: Female
  Weight: 55.8 kg

DRUGS (2)
  1. PRUCALOPRIDE [Suspect]
     Active Substance: PRUCALOPRIDE
     Indication: Constipation
     Route: 048
     Dates: start: 20250429, end: 20250506
  2. VITAMINS [Concomitant]
     Active Substance: VITAMINS
     Indication: Product used for unknown indication

REACTIONS (5)
  - Dyspepsia [Unknown]
  - Nausea [Unknown]
  - Abdominal distension [Unknown]
  - Flatulence [Unknown]
  - Drug ineffective [Unknown]
